FAERS Safety Report 19047125 (Version 1)
Quarter: 2021Q1

REPORT INFORMATION
  Report Type: Spontaneous
  Country: NO (occurrence: NO)
  Receive Date: 20210323
  Receipt Date: 20210323
  Transmission Date: 20210420
  Serious: Yes (Life-Threatening, Hospitalization, Other)
  Sender: FDA-Public Use
  Company Number: NO-IPCA LABORATORIES LIMITED-IPC-2021-NO-000634

PATIENT

DRUGS (2)
  1. TRAMADOL HYDROCHLORIDE. [Interacting]
     Active Substance: TRAMADOL HYDROCHLORIDE
     Indication: PRODUCT USED FOR UNKNOWN INDICATION
     Dosage: UNK
     Route: 065
  2. WARFARIN [Suspect]
     Active Substance: WARFARIN
     Indication: ANTICOAGULANT THERAPY
     Dosage: UNK
     Route: 065

REACTIONS (8)
  - C-reactive protein increased [Unknown]
  - Haemoglobin decreased [Unknown]
  - Drug interaction [Unknown]
  - Cardiac tamponade [Unknown]
  - Atrial fibrillation [Unknown]
  - Melaena [Unknown]
  - International normalised ratio increased [Unknown]
  - Discomfort [Unknown]
